FAERS Safety Report 14589753 (Version 2)
Quarter: 2018Q2

REPORT INFORMATION
  Report Type: Spontaneous
  Country: BR (occurrence: BR)
  Receive Date: 20180302
  Receipt Date: 20180402
  Transmission Date: 20180711
  Serious: Yes (Hospitalization)
  Sender: FDA-Public Use
  Company Number: BR-ABBVIE-17P-020-1970649-00

PATIENT
  Sex: Male
  Weight: 4.78 kg

DRUGS (2)
  1. DIVALCON [Suspect]
     Active Substance: DIVALPROEX SODIUM
     Indication: MATERNAL EXPOSURE DURING BREAST FEEDING
     Route: 063
  2. DEPAKOTE ER [Suspect]
     Active Substance: DIVALPROEX SODIUM
     Indication: MATERNAL EXPOSURE DURING PREGNANCY
     Route: 064

REACTIONS (6)
  - Dehydration [Recovered/Resolved]
  - Jaundice [Recovered/Resolved]
  - Maternal exposure during breast feeding [Recovered/Resolved]
  - Foetal exposure during pregnancy [Unknown]
  - Poor feeding infant [Unknown]
  - Somnolence [Unknown]

NARRATIVE: CASE EVENT DATE: 20171201
